FAERS Safety Report 12595682 (Version 1)
Quarter: 2016Q3

REPORT INFORMATION
  Report Type: Spontaneous
  Country: US (occurrence: US)
  Receive Date: 20160727
  Receipt Date: 20160727
  Transmission Date: 20161109
  Serious: No
  Sender: FDA-Public Use
  Company Number: US-ASTRAZENECA-2016SE78530

PATIENT
  Age: 58 Year
  Sex: Female
  Weight: 86.2 kg

DRUGS (3)
  1. PRILOSEC [Suspect]
     Active Substance: OMEPRAZOLE MAGNESIUM
     Indication: ABDOMINAL DISCOMFORT
     Dosage: DAILY
     Route: 048
     Dates: start: 2014
  2. NEXIUM [Suspect]
     Active Substance: ESOMEPRAZOLE MAGNESIUM
     Indication: DYSPEPSIA
     Dosage: 1 CAPSULE DAILY EVERY OTHER DAY OR AS NEEDED
     Route: 048
  3. PRILOSEC [Suspect]
     Active Substance: OMEPRAZOLE MAGNESIUM
     Indication: SLEEP APNOEA SYNDROME
     Dosage: DAILY
     Route: 048
     Dates: start: 2014

REACTIONS (7)
  - Constipation [Unknown]
  - Product use issue [Unknown]
  - Renal pain [Unknown]
  - Large intestine polyp [Unknown]
  - Activities of daily living impaired [Unknown]
  - Off label use [Unknown]
  - Back pain [Unknown]

NARRATIVE: CASE EVENT DATE: 2014
